FAERS Safety Report 17181360 (Version 1)
Quarter: 2019Q4

REPORT INFORMATION
  Report Type: Spontaneous
  Country: SE (occurrence: SE)
  Receive Date: 20191220
  Receipt Date: 20191220
  Transmission Date: 20200122
  Serious: Yes (Hospitalization)
  Sender: FDA-Public Use
  Company Number: SE-TEVA-2019-SE-1154107

PATIENT
  Sex: Female

DRUGS (11)
  1. CITALOPRAM [Suspect]
     Active Substance: CITALOPRAM HYDROBROMIDE
     Route: 048
     Dates: start: 20181120, end: 20181120
  2. LERGIGAN [PROMETHAZINE HYDROCHLORIDE] [Suspect]
     Active Substance: PROMETHAZINE HYDROCHLORIDE
     Route: 048
     Dates: start: 20181120, end: 20181120
  3. ABILIFY [Suspect]
     Active Substance: ARIPIPRAZOLE
     Route: 048
     Dates: start: 20181120, end: 20181120
  4. LORATADINE. [Suspect]
     Active Substance: LORATADINE
     Route: 048
     Dates: start: 20181120, end: 20181120
  5. PROPAVAN [Suspect]
     Active Substance: PROPIOMAZINE
     Route: 048
     Dates: start: 20181120, end: 20181120
  6. PARAFLEX [Suspect]
     Active Substance: CHLORZOXAZONE
     Route: 048
     Dates: start: 20181120, end: 20181120
  7. KALCIPOS [Suspect]
     Active Substance: CALCIUM CARBONATE
     Dates: start: 20181120, end: 20181120
  8. LEVAXIN [Suspect]
     Active Substance: LEVOTHYROXINE SODIUM
     Dates: start: 20181120, end: 20181120
  9. ZOPICLONE [Suspect]
     Active Substance: ZOPICLONE
     Route: 048
     Dates: start: 20181120, end: 20181120
  10. TRUXAL [Suspect]
     Active Substance: CHLORPROTHIXENE
     Route: 048
     Dates: start: 20181120, end: 20181120
  11. DUROFERON [Suspect]
     Active Substance: FERROUS SULFATE
     Dates: start: 20181120, end: 20181120

REACTIONS (6)
  - Intentional self-injury [Unknown]
  - Respiratory acidosis [Unknown]
  - Intentional overdose [Unknown]
  - Depressed level of consciousness [Unknown]
  - Lethargy [Unknown]
  - Metabolic acidosis [Unknown]

NARRATIVE: CASE EVENT DATE: 20181120
